FAERS Safety Report 9715867 (Version 5)
Quarter: 2014Q3

REPORT INFORMATION
  Report Type: Report from Study
  Country: CA (occurrence: CA)
  Receive Date: 20131127
  Receipt Date: 20140721
  Transmission Date: 20150326
  Serious: Yes (Death, Life-Threatening, Other)
  Sender: FDA-Public Use
  Company Number: CA-ROCHE-1245190

PATIENT
  Age: 48 Year
  Sex: Male
  Weight: 117 kg

DRUGS (24)
  1. SENOKOT [Concomitant]
     Active Substance: SENNOSIDES
  2. ZOPICLONE [Concomitant]
     Active Substance: ZOPICLONE
  3. ATIVAN [Concomitant]
     Active Substance: LORAZEPAM
     Dosage: AS NEEDED
     Route: 065
  4. HYDROXYZINE [Concomitant]
     Active Substance: HYDROXYZINE\HYDROXYZINE HYDROCHLORIDE
  5. STEMETIL [Concomitant]
     Active Substance: PROCHLORPERAZINE MALEATE
  6. AVASTIN [Suspect]
     Active Substance: BEVACIZUMAB
     Indication: GLIOBLASTOMA
     Route: 042
     Dates: start: 20130603
  7. DECADRON [Concomitant]
     Active Substance: DEXAMETHASONE
     Route: 065
  8. CLOBAZAM [Concomitant]
     Active Substance: CLOBAZAM
  9. RANITIDINE [Concomitant]
     Active Substance: RANITIDINE\RANITIDINE HYDROCHLORIDE
  10. COVERSYL [Concomitant]
     Active Substance: PERINDOPRIL
  11. AMLODIPINE BESYLATE. [Concomitant]
     Active Substance: AMLODIPINE BESYLATE
     Route: 065
  12. DILANTIN [Concomitant]
     Active Substance: PHENYTOIN
  13. LEVOTHYROXINE [Concomitant]
     Active Substance: LEVOTHYROXINE
  14. ETOPOSIDE. [Concomitant]
     Active Substance: ETOPOSIDE
  15. COLACE [Concomitant]
     Active Substance: DOCUSATE SODIUM
  16. KEPPRA [Concomitant]
     Active Substance: LEVETIRACETAM
  17. ZOFRAN [Concomitant]
     Active Substance: ONDANSETRON HYDROCHLORIDE
  18. AVASTIN [Suspect]
     Active Substance: BEVACIZUMAB
     Route: 042
     Dates: start: 20130801, end: 20131107
  19. DECADRON [Concomitant]
     Active Substance: DEXAMETHASONE
     Route: 065
  20. AMLODIPINE BESYLATE. [Concomitant]
     Active Substance: AMLODIPINE BESYLATE
     Route: 065
  21. ATORVASTATIN [Concomitant]
     Active Substance: ATORVASTATIN
     Route: 065
  22. NYSTATIN. [Concomitant]
     Active Substance: NYSTATIN
     Route: 065
  23. ATORVASTATIN [Concomitant]
     Active Substance: ATORVASTATIN
     Route: 065
  24. TUMS [Concomitant]
     Active Substance: CALCIUM CARBONATE

REACTIONS (14)
  - Hallucination [Unknown]
  - Laceration [Unknown]
  - Death [Fatal]
  - Fungal infection [Unknown]
  - Drug ineffective [Unknown]
  - Muscle spasms [Not Recovered/Not Resolved]
  - Condition aggravated [Unknown]
  - Deep vein thrombosis [Unknown]
  - Headache [Recovered/Resolved]
  - Blood test abnormal [Not Recovered/Not Resolved]
  - Neuralgia [Unknown]
  - Sleep terror [Unknown]
  - Sinus congestion [Not Recovered/Not Resolved]
  - Disease progression [Unknown]

NARRATIVE: CASE EVENT DATE: 20130703
